FAERS Safety Report 6299616-X (Version None)
Quarter: 2009Q3

REPORT INFORMATION
  Report Type: 
  Country: None (occurrence: None)
  Receive Date: 20090806
  Receipt Date: 20090731
  Transmission Date: 20100115
  Serious: Yes (Life-Threatening, Hospitalization, Other)
  Sender: FDA-Public Use
  Company Number: US-ELI_LILLY_AND_COMPANY-US200907001084

PATIENT
  Sex: Female

DRUGS (3)
  1. HUMALOG MIX 75/25 [Suspect]
     Dates: start: 20040101
  2. HUMALOG [Suspect]
     Dates: start: 20040101
  3. SPIRIVA [Concomitant]

REACTIONS (8)
  - ACUTE PULMONARY OEDEMA [None]
  - BLINDNESS [None]
  - BLOOD GLUCOSE DECREASED [None]
  - CARDIAC ARREST [None]
  - GLAUCOMA [None]
  - INAPPROPRIATE SCHEDULE OF DRUG ADMINISTRATION [None]
  - MACULAR DEGENERATION [None]
  - PNEUMONIA [None]
